FAERS Safety Report 6478413-6 (Version None)
Quarter: 2009Q4

REPORT INFORMATION
  Report Type: 
  Country: None (occurrence: None)
  Receive Date: 20091202
  Receipt Date: 20091116
  Transmission Date: 20100525
  Serious: Yes (Hospitalization)
  Sender: FDA-Public Use
  Company Number: 1000008836

PATIENT
  Age: 61 Year
  Sex: Female
  Weight: 40 kg

DRUGS (6)
  1. ESCITALOPRAM [Suspect]
     Indication: DEPRESSION
     Dosage: 10 MG (10 MG,1 IN 1 D),ORAL
     Route: 048
     Dates: start: 20090821, end: 20090823
  2. ATACAND [Suspect]
     Indication: HYPERTENSION
     Dosage: 8 MG (8 MG,1 IN 1 D),ORAL
     Route: 048
     Dates: start: 20060101, end: 20090823
  3. FOSVANCE [Concomitant]
  4. ROSUVASTATIN [Concomitant]
  5. CALCIUM CARBONATE [Concomitant]
  6. NEBIVOLOL [Concomitant]

REACTIONS (7)
  - CONFUSIONAL STATE [None]
  - EATING DISORDER [None]
  - ELECTROCARDIOGRAM REPOLARISATION ABNORMALITY [None]
  - HYPONATRAEMIA [None]
  - SOMNOLENCE [None]
  - STATUS EPILEPTICUS [None]
  - TACHYCARDIA [None]
